FAERS Safety Report 8351498-8 (Version None)
Quarter: 2012Q2

REPORT INFORMATION
  Report Type: 
  Country: None (occurrence: None)
  Receive Date: 20120510
  Receipt Date: 20120509
  Transmission Date: 20120825
  Serious: Yes (Other)
  Sender: FDA-Public Use
  Company Number: US-AMGEN-USASP2012008444

PATIENT
  Age: 90 Year
  Sex: Female
  Weight: 52.154 kg

DRUGS (13)
  1. FUROSEMIDE [Concomitant]
     Dosage: 20 MG, QD
     Route: 048
  2. WARFARIN SODIUM [Concomitant]
     Dosage: 2.5 MG, UNK
     Route: 048
  3. SYMBICORT [Concomitant]
     Route: 055
  4. PROLIA [Suspect]
     Indication: OSTEOPOROSIS POSTMENOPAUSAL
     Dosage: 60 MG, Q6MO
     Route: 058
     Dates: start: 20110927, end: 20110927
  5. DILTIAZEM HYDROCHLORIDE [Concomitant]
     Dosage: 240 MG, QD
     Route: 048
  6. SPIRIVA [Concomitant]
     Dosage: 8 MUG, QD
     Route: 055
  7. LEVOTHYROXINE SODIUM [Concomitant]
     Dosage: 112 MUG, QD
     Route: 048
  8. DIGOXIN [Concomitant]
     Dosage: 0.125 MG, 3 TIMES/WK
     Route: 048
  9. XOPENEX [Concomitant]
     Dosage: 45 MUG, UNK
     Route: 055
  10. PAROXETINE [Concomitant]
     Dosage: 25 MG, QD
     Route: 048
  11. ERGOCALCIFEROL [Concomitant]
     Dosage: 50000 IU, QWK
     Route: 048
  12. NADOLOL [Concomitant]
     Dosage: 80 MG, QD
     Route: 048
  13. FAMOTIDINE [Concomitant]
     Dosage: 40 MG, BID
     Route: 048

REACTIONS (1)
  - LOCALISED INFECTION [None]
